FAERS Safety Report 4367398-4 (Version None)
Quarter: 2004Q2

REPORT INFORMATION
  Report Type: 
  Country: None (occurrence: None)
  Receive Date: 20040528
  Receipt Date: 20040528
  Transmission Date: 20050107
  Serious: Yes (Hospitalization, Other)
  Sender: FDA-Public Use
  Company Number: None

PATIENT
  Sex: Male
  Weight: 69.4003 kg

DRUGS (16)
  1. WARFARIN SODIUM [Suspect]
     Indication: THROMBOSIS
     Dosage: DIALY X 12 ORAL
     Route: 048
     Dates: start: 20040105, end: 20040112
  2. LOVENOX [Suspect]
     Indication: THROMBOSIS
     Dosage: X 7 DAYS SQ
     Route: 058
     Dates: start: 20040102, end: 20040108
  3. DONEPEZIL HCL [Concomitant]
  4. RISPERIDONE [Concomitant]
  5. LORAZEPAM [Concomitant]
  6. DIGOXIN [Concomitant]
  7. FUROSEMIDE [Concomitant]
  8. LISINOPRIL [Concomitant]
  9. NITROGLYCERIN [Concomitant]
  10. LOVASTATOM [Concomitant]
  11. ALBUTEROL [Concomitant]
  12. ATROVENT NEB [Concomitant]
  13. RANITIDINE [Concomitant]
  14. FINASTERIDE [Concomitant]
  15. QUININE [Concomitant]
  16. ZINC OXIDE [Concomitant]

REACTIONS (8)
  - ALANINE AMINOTRANSFERASE INCREASED [None]
  - ASPARTATE AMINOTRANSFERASE INCREASED [None]
  - BLOOD CREATININE INCREASED [None]
  - CAPILLARY DISORDER [None]
  - FAT EMBOLISM [None]
  - LIVEDO RETICULARIS [None]
  - PERIPHERAL EMBOLISM [None]
  - SKIN DISCOLOURATION [None]
